FAERS Safety Report 9337223 (Version 2)
Quarter: 2013Q2

REPORT INFORMATION
  Report Type: Spontaneous
  Country: US (occurrence: US)
  Receive Date: 20130607
  Receipt Date: 20130614
  Transmission Date: 20140414
  Serious: Yes (Hospitalization, Other)
  Sender: FDA-Public Use
  Company Number: US-ELI_LILLY_AND_COMPANY-US201305009324

PATIENT
  Age: 61 Year
  Sex: Female

DRUGS (7)
  1. CYMBALTA [Suspect]
     Indication: DEPRESSION
     Dosage: 30 MG, QD
     Dates: start: 20130518, end: 20130518
  2. CYMBALTA [Suspect]
     Dosage: 60 MG, QD
     Dates: start: 20130519, end: 20130519
  3. CYMBALTA [Suspect]
     Dosage: 90 MG, QD
     Dates: start: 20130520
  4. CYMBALTA [Suspect]
     Dosage: 60 MG, QD
  5. EFFEXOR [Concomitant]
     Indication: DEPRESSION
     Dosage: 150 MG, QD
  6. EFFEXOR [Concomitant]
     Dosage: 225 MG, QD
     Dates: start: 201204
  7. BENADRYL                           /00000402/ [Concomitant]

REACTIONS (8)
  - Pruritus [Unknown]
  - Dyspnoea [Unknown]
  - Blood pressure decreased [Recovering/Resolving]
  - Loss of consciousness [Recovered/Resolved]
  - Mania [Recovered/Resolved]
  - Feeling jittery [Recovered/Resolved]
  - Anxiety [Recovering/Resolving]
  - Dry mouth [Not Recovered/Not Resolved]
